FAERS Safety Report 9867255 (Version 2)
Quarter: 2014Q1

REPORT INFORMATION
  Report Type: Report from Study
  Country: CA (occurrence: CA)
  Receive Date: 20140204
  Receipt Date: 20140204
  Transmission Date: 20141002
  Serious: Yes (Other)
  Sender: FDA-Public Use
  Company Number: CA-BRISTOL-MYERS SQUIBB COMPANY-15928120

PATIENT
  Age: 79 Year
  Sex: Male

DRUGS (7)
  1. ORENCIA [Suspect]
     Indication: RHEUMATOID ARTHRITIS
     Dosage: INF 42 LAST INF 28JUN11,30JUL11?EXP DATE:JUL15?3A80545-SEP15?3H65580-JUL16
     Route: 042
     Dates: start: 20080625
  2. WARFARIN SODIUM [Suspect]
  3. METHOTREXATE [Concomitant]
  4. ARTHROTEC [Concomitant]
  5. PLAQUENIL [Concomitant]
  6. LASIX [Concomitant]
  7. DILTIAZEM HCL [Concomitant]

REACTIONS (9)
  - Macular degeneration [Unknown]
  - Skin cancer [Not Recovered/Not Resolved]
  - Blister [Unknown]
  - Dizziness [Unknown]
  - Haematoma [Unknown]
  - Chronic obstructive pulmonary disease [Unknown]
  - Skin discolouration [Unknown]
  - Pain in extremity [Unknown]
  - Rash [Recovered/Resolved]
